FAERS Safety Report 7631652-0 (Version None)
Quarter: 2011Q3

REPORT INFORMATION
  Report Type: 
  Country: None (occurrence: None)
  Receive Date: 20110725
  Receipt Date: 20110307
  Transmission Date: 20111222
  Serious: No
  Sender: FDA-Public Use
  Company Number: US-BRISTOL-MYERS SQUIBB COMPANY-15534191

PATIENT
  Age: 79 Year
  Sex: Male

DRUGS (2)
  1. WARFARIN SODIUM [Suspect]
  2. LOVENOX [Suspect]
     Indication: THERAPEUTIC PROCEDURE
     Dosage: PARENTRAL,INJ,SOLN,100MG/ML JAN2011-UNK JAN2011-ONG
     Route: 065
     Dates: start: 20110101

REACTIONS (1)
  - INTERNATIONAL NORMALISED RATIO ABNORMAL [None]
